FAERS Safety Report 23353700 (Version 1)
Quarter: 2024Q1

REPORT INFORMATION
  Report Type: Spontaneous
  Country: US (occurrence: US)
  Receive Date: 20240101
  Receipt Date: 20240101
  Transmission Date: 20240409
  Serious: No
  Sender: FDA-Public Use
  Company Number: US-PURDUE PHARMA-USA-2023-0302706

PATIENT
  Sex: Female
  Weight: 61.23 kg

DRUGS (11)
  1. OXYCODONE HYDROCHLORIDE [Suspect]
     Active Substance: OXYCODONE HYDROCHLORIDE
     Indication: Pain management
     Dosage: 1 EVERY 5 HOURS
     Route: 048
     Dates: start: 20231023
  2. OXYCODONE HYDROCHLORIDE [Suspect]
     Active Substance: OXYCODONE HYDROCHLORIDE
     Indication: Pain
  3. DILAUDID [Suspect]
     Active Substance: HYDROMORPHONE HYDROCHLORIDE
     Indication: Product used for unknown indication
     Dosage: 4 MILLIGRAM
     Route: 048
  4. DILAUDID [Suspect]
     Active Substance: HYDROMORPHONE HYDROCHLORIDE
     Dosage: 2 MILLIGRAM
     Route: 048
  5. HYDROMORPHONE [Suspect]
     Active Substance: HYDROMORPHONE
     Indication: Sciatica
     Dosage: ONCE EVERY 4 HOURS - MD IS TAPERING DOWN DOWN STARTING THIS MONTH - SOMETIMES SHE GOES EVERY 5 HOURS
     Route: 048
     Dates: start: 20211201
  6. HYDROMORPHONE [Suspect]
     Active Substance: HYDROMORPHONE
     Indication: Pain management
     Dosage: EVERY 4 HOURS, TAPERING DIFFERENT DAYS AND TAKE EVERY 5 HOURS SOMETIMES(4 MILLIGRAM, Q4H)
     Route: 048
     Dates: start: 202112
  7. HYDROMORPHONE [Suspect]
     Active Substance: HYDROMORPHONE
     Indication: Pain
     Dosage: 2 TABLET, Q4H (2 MILLIGRAM)
     Route: 048
  8. DEXTROAMPHET SACCHARAT, AMPHET ASPARTATE, DEXTROAMPHET SULFATE AND AMP [Suspect]
     Active Substance: AMPHETAMINE ASPARTATE\AMPHETAMINE ASPARTATE MONOHYDRATE\AMPHETAMINE SULFATE\DEXTROAMPHETAMINE SACCHA
     Indication: Somnolence
     Dosage: 40 MILLIGRAM
     Route: 048
  9. OXYCODONE/APAP [Suspect]
     Active Substance: ACETAMINOPHEN\OXYCODONE HYDROCHLORIDE
     Indication: Product used for unknown indication
     Dosage: 10/325MG FOR TWO WEEKS
     Route: 048
  10. TYLENOL [Concomitant]
     Active Substance: ACETAMINOPHEN
     Indication: Pain management
     Dosage: 1 TABLET 4-5 HOURS
     Route: 048
  11. MOTRIN [Concomitant]
     Active Substance: IBUPROFEN
     Indication: Pain management
     Dosage: UNK, PRN
     Route: 048

REACTIONS (17)
  - Fall [Unknown]
  - Illness [Unknown]
  - Contusion [Unknown]
  - Dizziness [Unknown]
  - Vomiting [Unknown]
  - Nausea [Unknown]
  - Wrong technique in product usage process [Unknown]
  - Somnolence [Unknown]
  - Drug ineffective [Unknown]
  - Intentional product use issue [Unknown]
  - Product physical issue [Unknown]
  - Abdominal discomfort [Unknown]
  - Drug withdrawal syndrome [Unknown]
  - Chest discomfort [Unknown]
  - Product availability issue [Unknown]
  - Product dose omission issue [Unknown]
  - Gait disturbance [Unknown]
